FAERS Safety Report 8618642-6 (Version None)
Quarter: 2012Q3

REPORT INFORMATION
  Report Type: 
  Country: None (occurrence: None)
  Receive Date: 20120814
  Receipt Date: 20120814
  Transmission Date: 20120928
  Serious: Yes (Hospitalization)
  Sender: FDA-Public Use
  Company Number: None

PATIENT
  Age: 37 Year
  Sex: Female
  Weight: 120.2032 kg

DRUGS (2)
  1. TOPAMAX [Suspect]
     Indication: PROPHYLAXIS
     Dosage: 50 MG, BID, PO
     Route: 048
  2. TOPAMAX [Suspect]
     Indication: HEADACHE
     Dosage: 50 MG, BID, PO
     Route: 048

REACTIONS (1)
  - PULMONARY EMBOLISM [None]
